FAERS Safety Report 7755356-9 (Version None)
Quarter: 2011Q3

REPORT INFORMATION
  Report Type: 
  Country: None (occurrence: None)
  Receive Date: 20110916
  Receipt Date: 20110906
  Transmission Date: 20111222
  Serious: Yes (Hospitalization)
  Sender: FDA-Public Use
  Company Number: US-JNJFOC-20110902782

PATIENT
  Age: 75 Year
  Sex: Male
  Weight: 74.84 kg

DRUGS (7)
  1. STATINS [Concomitant]
     Indication: BLOOD CHOLESTEROL
     Route: 048
     Dates: end: 20110701
  2. STOOL SOFTENER [Concomitant]
     Indication: CONSTIPATION
     Route: 048
  3. PREDNISONE [Concomitant]
     Indication: PRODUCT USED FOR UNKNOWN INDICATION
     Route: 048
     Dates: start: 20110701
  4. AMLODIPINE [Concomitant]
     Indication: HYPERTENSION
     Route: 048
  5. OXYCODONE HCL [Concomitant]
     Indication: PAIN
     Route: 048
  6. ZYTIGA [Suspect]
     Indication: PROSTATE CANCER
     Route: 048
     Dates: start: 20110701, end: 20110701
  7. ATENOLOL [Concomitant]
     Indication: HYPERTENSION
     Route: 048

REACTIONS (2)
  - URINARY TRACT INFECTION [None]
  - BLOOD CREATINE PHOSPHOKINASE INCREASED [None]
